FAERS Safety Report 10110167 (Version 1)
Quarter: 2014Q2

REPORT INFORMATION
  Report Type: Spontaneous
  Country: US (occurrence: None)
  Receive Date: 20140421
  Receipt Date: 20140421
  Transmission Date: 20141212
  Serious: No
  Sender: FDA-Public Use
  Company Number: AEGR0000255

PATIENT
  Age: 63 Year
  Sex: Female
  Weight: 69.8 kg

DRUGS (13)
  1. JUXTAPID (LOMITAPIDE) CAPSULE, 10MG [Suspect]
     Indication: TYPE IIA HYPERLIPIDAEMIA
     Dates: start: 2013, end: 201310
  2. FISH OIL [Concomitant]
  3. PREVACID (LANSOPRAZOLE) [Concomitant]
  4. HYDROCHLOROTHIAZIDE [Concomitant]
  5. LISINOPRIL [Concomitant]
  6. IMITREX (SUMATRIPTAN) [Concomitant]
  7. ESGIC [Concomitant]
  8. VITAMIN D [Concomitant]
  9. ZYRTEC (CETIRIZINE HYDROCHLORIDE) [Concomitant]
  10. PROGESTERONE [Concomitant]
  11. MICARDIS (TELMISARTAN) [Concomitant]
  12. ZEBETA [Concomitant]
  13. VITAMIN E [Concomitant]

REACTIONS (3)
  - Diarrhoea [None]
  - Weight decreased [None]
  - Nausea [None]
